FAERS Safety Report 8382563-7 (Version None)
Quarter: 2012Q2

REPORT INFORMATION
  Report Type: 
  Country: None (occurrence: None)
  Receive Date: 20120524
  Receipt Date: 20120518
  Transmission Date: 20120825
  Serious: Yes (Hospitalization, Other)
  Sender: FDA-Public Use
  Company Number: CA-JNJFOC-20120408313

PATIENT
  Age: 82 Year
  Sex: Male
  Weight: 61 kg

DRUGS (9)
  1. RAMIPRIL [Concomitant]
  2. METOPROLOL [Concomitant]
  3. ATORVASTATIN CALCIUM [Concomitant]
  4. XARELTO [Suspect]
     Indication: ATRIAL FIBRILLATION
     Route: 048
     Dates: start: 20120330, end: 20120410
  5. AMLODIPINE BESYLATE [Concomitant]
  6. ISMN [Concomitant]
  7. PANTOPRAZOLE [Concomitant]
  8. ASPIRIN [Suspect]
     Indication: ILL-DEFINED DISORDER
  9. CLOPIDOGREL [Concomitant]

REACTIONS (3)
  - ANGINA PECTORIS [None]
  - HAEMATOMA [None]
  - ANAEMIA [None]
